FAERS Safety Report 5727672-3 (Version None)
Quarter: 2008Q2

REPORT INFORMATION
  Report Type: 
  Country: None (occurrence: None)
  Receive Date: 20080505
  Receipt Date: 20080425
  Transmission Date: 20081010
  Serious: Yes (Hospitalization)
  Sender: FDA-Public Use
  Company Number: B0518861A

PATIENT
  Age: 18 Year
  Sex: Male

DRUGS (3)
  1. AMOXICILLIN + CLAVULANATE POTASSIUM [Suspect]
     Indication: GASTROENTERITIS BACTERIAL
     Dosage: 500MG THREE TIMES PER DAY
     Route: 065
  2. REHYDRATION [Concomitant]
     Route: 048
  3. CIPROFLOXACIN [Concomitant]
     Dosage: 400MG TWICE PER DAY
     Route: 042

REACTIONS (11)
  - ALANINE AMINOTRANSFERASE INCREASED [None]
  - ASPARTATE AMINOTRANSFERASE INCREASED [None]
  - BLOOD CULTURE POSITIVE [None]
  - BLOOD GLUCOSE INCREASED [None]
  - CAMPYLOBACTER INFECTION [None]
  - CULTURE STOOL POSITIVE [None]
  - DIARRHOEA HAEMORRHAGIC [None]
  - HEPATIC ENZYME INCREASED [None]
  - LEUKOPENIA [None]
  - PYREXIA [None]
  - SALMONELLOSIS [None]
